FAERS Safety Report 8890214 (Version 1)
Quarter: 2012Q4

REPORT INFORMATION
  Report Type: Report from Study
  Country: CA (occurrence: CA)
  Receive Date: 20121107
  Receipt Date: 20121107
  Transmission Date: 20130627
  Serious: Yes (Other)
  Sender: FDA-Public Use
  Company Number: CA-JNJFOC-20121016312

PATIENT
  Age: 51 None
  Sex: Female
  Weight: 68.95 kg

DRUGS (6)
  1. REMICADE [Suspect]
     Indication: COLITIS ULCERATIVE
     Route: 042
     Dates: start: 201205
  2. REMICADE [Suspect]
     Indication: COLITIS ULCERATIVE
     Route: 042
     Dates: start: 20120423
  3. REMICADE [Suspect]
     Indication: COLITIS ULCERATIVE
     Route: 042
  4. PREDNISONE [Concomitant]
     Route: 065
     Dates: end: 20120805
  5. PREDNISONE [Concomitant]
     Route: 065
  6. SALOFALK [Concomitant]
     Route: 065

REACTIONS (6)
  - Drug specific antibody present [Unknown]
  - Musculoskeletal stiffness [Unknown]
  - Condition aggravated [Unknown]
  - Joint stiffness [Unknown]
  - Visual impairment [Unknown]
  - Arthralgia [Unknown]
